FAERS Safety Report 10174548 (Version 1)
Quarter: 2014Q2

REPORT INFORMATION
  Report Type: Spontaneous
  Country: SE (occurrence: SE)
  Receive Date: 20140515
  Receipt Date: 20140515
  Transmission Date: 20141212
  Serious: Yes (Other)
  Sender: FDA-Public Use
  Company Number: SE-ACTAVIS-2014-09681

PATIENT
  Age: 95 Year
  Sex: Female

DRUGS (11)
  1. PANTOPRAZOL ACTAVIS [Suspect]
     Indication: GASTRIC ULCER
     Dosage: 80 MG, DAILY
     Route: 048
     Dates: start: 20140411
  2. PANTOPRAZOL ACTAVIS [Suspect]
     Indication: GASTRIC ULCER HAEMORRHAGE
     Dosage: 40 UNK, UNK
     Route: 048
  3. PANTOPRAZOL ACTAVIS [Suspect]
     Dosage: 20 MG, UNKNOWN
     Route: 048
     Dates: start: 2007
  4. PANTOPRAZOL ACTAVIS [Suspect]
     Dosage: UNK
  5. LORATADIN ACTAVIS [Suspect]
     Indication: HYPERSENSITIVITY
     Dosage: 10 MG, DAILY
     Route: 048
  6. SELOKEN ZOC/ASA [Concomitant]
     Indication: PRODUCT USED FOR UNKNOWN INDICATION
     Dosage: UNK UNK, UNKNOWN
     Route: 065
  7. TROMBYL [Concomitant]
     Indication: PRODUCT USED FOR UNKNOWN INDICATION
     Dosage: UNK UNK, UNKNOWN
     Route: 065
  8. SPIRONOLACTONE A L [Concomitant]
     Indication: PRODUCT USED FOR UNKNOWN INDICATION
     Dosage: UNK UNK, UNKNOWN
     Route: 065
  9. PARAFLEX /00041601/ [Concomitant]
     Indication: PRODUCT USED FOR UNKNOWN INDICATION
     Dosage: UNK UNK, UNKNOWN
     Route: 065
  10. BRICANYL TURBUHALER [Concomitant]
     Indication: PRODUCT USED FOR UNKNOWN INDICATION
     Dosage: UNK UNK, UNKNOWN
     Route: 065
  11. DIGOXIN /00545901/ [Concomitant]
     Indication: PRODUCT USED FOR UNKNOWN INDICATION
     Dosage: 0,13 MG FREQUENCY UNKNOWN
     Route: 065
     Dates: start: 20130512

REACTIONS (5)
  - Gastric ulcer [Recovering/Resolving]
  - Arrhythmia [Recovering/Resolving]
  - Cardiac fibrillation [Recovering/Resolving]
  - Fatigue [Recovering/Resolving]
  - Gastric ulcer haemorrhage [Recovering/Resolving]
